FAERS Safety Report 9205281 (Version 7)
Quarter: 2018Q2

REPORT INFORMATION
  Report Type: Spontaneous
  Country: GB (occurrence: GB)
  Receive Date: 20130402
  Receipt Date: 20180413
  Transmission Date: 20180711
  Serious: Yes (Death, Life-Threatening, Hospitalization, Other)
  Sender: FDA-Public Use
  Company Number: GB-PFIZER INC-GBWYE552512APR06

PATIENT
  Age: 26 Year
  Sex: Female

DRUGS (1)
  1. IBUPROFEN. [Suspect]
     Active Substance: IBUPROFEN
     Dosage: OVERDOSE OF 105G (BETWEEN 90 AND 130 TABLETS)
     Route: 048

REACTIONS (11)
  - Arrhythmia [Fatal]
  - Loss of consciousness [Not Recovered/Not Resolved]
  - Fall [Unknown]
  - Cardiac arrest [Fatal]
  - Hypotension [Not Recovered/Not Resolved]
  - Toxicity to various agents [Fatal]
  - Renal impairment [Not Recovered/Not Resolved]
  - Haemodynamic instability [Not Recovered/Not Resolved]
  - Intentional overdose [Fatal]
  - Myocardial ischaemia [Fatal]
  - Metabolic acidosis [Fatal]
